FAERS Safety Report 7235262-9 (Version None)
Quarter: 2011Q1

REPORT INFORMATION
  Report Type: 
  Country: None (occurrence: None)
  Receive Date: 20110120
  Receipt Date: 20110117
  Transmission Date: 20110831
  Serious: Yes (Other)
  Sender: FDA-Public Use
  Company Number: US-JNJFOC-20101102321

PATIENT
  Sex: Male
  Weight: 123.83 kg

DRUGS (6)
  1. FLONASE [Concomitant]
     Indication: PRODUCT USED FOR UNKNOWN INDICATION
     Route: 055
  2. HALDOL [Suspect]
     Indication: SCHIZOAFFECTIVE DISORDER
     Route: 030
  3. ZYPREXA [Suspect]
     Indication: PRODUCT USED FOR UNKNOWN INDICATION
     Route: 065
  4. INVEGA ER [Concomitant]
     Indication: SCHIZOAFFECTIVE DISORDER
     Route: 030
  5. COGENTIN [Concomitant]
     Indication: PRODUCT USED FOR UNKNOWN INDICATION
     Route: 065
  6. ABILIFY [Concomitant]
     Indication: PRODUCT USED FOR UNKNOWN INDICATION
     Route: 065

REACTIONS (4)
  - CONSTIPATION [None]
  - DYSPHAGIA [None]
  - ABNORMAL LOSS OF WEIGHT [None]
  - DECREASED APPETITE [None]
